FAERS Safety Report 5697675-6 (Version None)
Quarter: 2008Q2

REPORT INFORMATION
  Report Type: 
  Country: None (occurrence: None)
  Receive Date: 20080408
  Receipt Date: 20080320
  Transmission Date: 20081010
  Serious: Yes (Life-Threatening, Hospitalization, Other)
  Sender: FDA-Public Use
  Company Number: A0710044A

PATIENT
  Age: 44 Year
  Sex: Male

DRUGS (2)
  1. AMBRISENTAN [Suspect]
     Indication: PULMONARY HYPERTENSION
     Dosage: 10MG PER DAY
     Route: 048
  2. FLOLAN [Suspect]
     Indication: PULMONARY HYPERTENSION
     Dates: start: 20080116, end: 20080101

REACTIONS (8)
  - ATRIAL FIBRILLATION [None]
  - DYSPNOEA [None]
  - HYPOXIA [None]
  - PERIPHERAL VASCULAR DISORDER [None]
  - PULMONARY OEDEMA [None]
  - RENAL DISORDER [None]
  - RIGHT VENTRICULAR FAILURE [None]
  - THROMBOCYTOPENIA [None]
